FAERS Safety Report 13464735 (Version 4)
Quarter: 2018Q2

REPORT INFORMATION
  Report Type: Report from Study
  Country: JP (occurrence: JP)
  Receive Date: 20170420
  Receipt Date: 20180615
  Transmission Date: 20180711
  Serious: No
  Sender: FDA-Public Use
  Company Number: JP-ALLERGAN-1713467US

PATIENT
  Age: 40 Year
  Sex: Male

DRUGS (3)
  1. BOTULINUM TOXIN TYPE A - GENERAL (9060X) [Suspect]
     Active Substance: BOTULINUM TOXIN TYPE A
     Indication: STRABISMUS
     Dosage: 2.5 UNITS, SINGLE
     Route: 030
     Dates: start: 20170303, end: 20170303
  2. GATIFLO [Concomitant]
     Active Substance: GATIFLOXACIN
     Indication: INFECTION PROPHYLAXIS
     Dosage: UNK
  3. FLUMETHOLON [Concomitant]
     Active Substance: FLUOROMETHOLONE
     Indication: INFECTION PROPHYLAXIS
     Dosage: UNK

REACTIONS (1)
  - No adverse event [Unknown]
